FAERS Safety Report 16499683 (Version 1)
Quarter: 2019Q3

REPORT INFORMATION
  Report Type: Spontaneous
  Country: SE (occurrence: SE)
  Receive Date: 20190701
  Receipt Date: 20190701
  Transmission Date: 20191004
  Serious: Yes (Hospitalization)
  Sender: FDA-Public Use
  Company Number: SE-ACCORD-136054

PATIENT
  Age: 24 Year
  Sex: Female

DRUGS (4)
  1. QUETIAPINE. [Suspect]
     Active Substance: QUETIAPINE
     Dosage: 25 MG, 4 PIECE
     Route: 048
     Dates: start: 20190404, end: 20190404
  2. LERGIGAN (PROMETHAZINE HYDROCHLORIDE) [Suspect]
     Active Substance: PROMETHAZINE HYDROCHLORIDE
     Dosage: UNCLEAR NUMBER
     Route: 048
     Dates: start: 20190404, end: 20190404
  3. IMOVANE [Suspect]
     Active Substance: ZOPICLONE
     Dosage: 10-12 PIECE
     Route: 048
     Dates: start: 20190404, end: 20190404
  4. SEROQUEL [Suspect]
     Active Substance: QUETIAPINE FUMARATE
     Dosage: 10-12 PIECE  OF 50 MG
     Route: 048
     Dates: start: 20190404, end: 20190404

REACTIONS (2)
  - Intentional self-injury [Unknown]
  - Intentional overdose [Unknown]

NARRATIVE: CASE EVENT DATE: 20190404
